FAERS Safety Report 24737608 (Version 2)
Quarter: 2024Q4

REPORT INFORMATION
  Report Type: Spontaneous
  Country: JP (occurrence: JP)
  Receive Date: 20241216
  Receipt Date: 20241219
  Transmission Date: 20250115
  Serious: Yes (Hospitalization, Other)
  Sender: PFIZER
  Company Number: JP-MLMSERVICE-20241129-PI273961-00053-1

PATIENT
  Age: 80 Year
  Sex: Male

DRUGS (4)
  1. AMPICILLIN SODIUM\SULBACTAM SODIUM [Suspect]
     Active Substance: AMPICILLIN SODIUM\SULBACTAM SODIUM
     Indication: Pneumonia aspiration
     Dosage: 6 G, DAILY
  2. AMPICILLIN SODIUM\SULBACTAM SODIUM [Suspect]
     Active Substance: AMPICILLIN SODIUM\SULBACTAM SODIUM
     Dosage: ON DAY 27 ABPC/SBT REGIMEN AT 6 G/DAY WAS RESUMED
  3. AMPICILLIN SODIUM\SULBACTAM SODIUM [Suspect]
     Active Substance: AMPICILLIN SODIUM\SULBACTAM SODIUM
     Dosage: ON DAY 57 IT AGAIN RESTARTED
  4. AMOXICILLIN\CLAVULANIC ACID [Suspect]
     Active Substance: AMOXICILLIN\CLAVULANIC ACID
     Indication: Pneumonia aspiration
     Dosage: ON DAY SIX IT STARTED AND ON DAY 11 IT DISCONTINUED
     Route: 048

REACTIONS (4)
  - Muscle abscess [Unknown]
  - Pseudomonas infection [Unknown]
  - Intervertebral discitis [Unknown]
  - Osteomyelitis [Unknown]
